FAERS Safety Report 4367146-8 (Version None)
Quarter: 2004Q2

REPORT INFORMATION
  Report Type: 
  Country: None (occurrence: None)
  Receive Date: 20040524
  Receipt Date: 20040517
  Transmission Date: 20050107
  Serious: Yes (Other)
  Sender: FDA-Public Use
  Company Number: 2004-05-1244

PATIENT
  Sex: Female

DRUGS (1)
  1. ALBUTEROL [Suspect]
     Dosage: ORAL AER INH
     Route: 055

REACTIONS (3)
  - MEDICAL DEVICE COMPLICATION [None]
  - TOOTH INJURY [None]
  - TOOTH LOSS [None]
